FAERS Safety Report 23217927 (Version 1)
Quarter: 2023Q4

REPORT INFORMATION
  Report Type: Spontaneous
  Country: None (occurrence: RU)
  Receive Date: 20231122
  Receipt Date: 20231122
  Transmission Date: 20240110
  Serious: Yes (Hospitalization)
  Sender: FDA-Public Use
  Company Number: RU-B.Braun Medical Inc.-2148592

PATIENT
  Age: 9 Year
  Sex: Female
  Weight: 31 kg

DRUGS (2)
  1. SODIUM CHLORIDE [Suspect]
     Active Substance: SODIUM CHLORIDE
     Indication: Sepsis
  2. MEROPENEM [Suspect]
     Active Substance: MEROPENEM

REACTIONS (2)
  - Urticaria [None]
  - Off label use [None]
